FAERS Safety Report 6837953-8 (Version None)
Quarter: 2010Q3

REPORT INFORMATION
  Report Type: 
  Country: None (occurrence: None)
  Receive Date: 20100713
  Receipt Date: 20070524
  Transmission Date: 20110219
  Serious: No
  Sender: FDA-Public Use
  Company Number: US-PFIZER INC-2007042967

PATIENT
  Sex: Female
  Weight: 71 kg

DRUGS (6)
  1. CHANTIX [Suspect]
     Indication: SMOKING CESSATION THERAPY
     Dates: start: 20070517
  2. MORPHINE [Concomitant]
  3. PROZAC [Concomitant]
  4. XANAX [Concomitant]
  5. AMBIEN [Concomitant]
  6. SOMA [Concomitant]

REACTIONS (3)
  - ASTHENIA [None]
  - DISTURBANCE IN ATTENTION [None]
  - NAUSEA [None]
